FAERS Safety Report 7750533-5 (Version None)
Quarter: 2011Q3

REPORT INFORMATION
  Report Type: 
  Country: None (occurrence: None)
  Receive Date: 20110914
  Receipt Date: 20110905
  Transmission Date: 20111222
  Serious: Yes (Hospitalization)
  Sender: FDA-Public Use
  Company Number: GB-JNJFOC-20090701870

PATIENT
  Sex: Male
  Weight: 99.7 kg

DRUGS (19)
  1. REMICADE [Suspect]
     Indication: CROHN'S DISEASE
     Route: 042
     Dates: start: 20081201
  2. METHOTREXATE [Concomitant]
     Indication: CROHN'S DISEASE
     Dates: start: 20080501
  3. GLICLAZIDE [Concomitant]
     Indication: DIABETES MELLITUS
  4. PROPRANOLOL [Concomitant]
  5. REMICADE [Suspect]
     Route: 042
     Dates: start: 20090126
  6. REMICADE [Suspect]
     Route: 042
     Dates: start: 20090323
  7. REMICADE [Suspect]
     Route: 042
     Dates: start: 20080811
  8. RAMIPRIL [Concomitant]
  9. REMICADE [Suspect]
     Route: 042
     Dates: start: 20081006
  10. REMICADE [Suspect]
     Route: 042
     Dates: start: 20090518
  11. FOLIC ACID [Concomitant]
     Dates: start: 20080501
  12. OMEPRAZOLE [Concomitant]
     Dates: start: 19960101
  13. REMICADE [Suspect]
     Route: 042
     Dates: start: 20071210
  14. REMICADE [Suspect]
     Route: 042
     Dates: start: 20080204
  15. REMICADE [Suspect]
     Route: 042
     Dates: start: 20080428
  16. REMICADE [Suspect]
     Route: 042
     Dates: start: 20070709
  17. REMICADE [Suspect]
     Route: 042
     Dates: start: 20070530
  18. REMICADE [Suspect]
     Route: 042
     Dates: start: 20070515
  19. REMICADE [Suspect]
     Route: 042
     Dates: start: 20080311

REACTIONS (1)
  - SUPRAVENTRICULAR TACHYCARDIA [None]
